FAERS Safety Report 6213388-6 (Version None)
Quarter: 2009Q2

REPORT INFORMATION
  Report Type: 
  Country: None (occurrence: None)
  Receive Date: 20090603
  Receipt Date: 20090521
  Transmission Date: 20091009
  Serious: Yes (Hospitalization, Other)
  Sender: FDA-Public Use
  Company Number: PHHY2008GB20340

PATIENT
  Sex: Male

DRUGS (2)
  1. CLOZARIL [Suspect]
     Indication: SCHIZOPHRENIA
     Dosage: UNK
     Dates: start: 19910912, end: 20080823
  2. CLOZARIL [Suspect]
     Dosage: UNK
     Dates: start: 20081016

REACTIONS (6)
  - MENTAL IMPAIRMENT [None]
  - NASOPHARYNGITIS [None]
  - NEUTROPENIA [None]
  - PLATELET COUNT DECREASED [None]
  - PSYCHOTIC DISORDER [None]
  - WHITE BLOOD CELL COUNT DECREASED [None]
